FAERS Safety Report 12460410 (Version 1)
Quarter: 2016Q2

REPORT INFORMATION
  Report Type: Spontaneous
  Country: US (occurrence: US)
  Receive Date: 20160613
  Receipt Date: 20160613
  Transmission Date: 20160815
  Serious: No
  Sender: FDA-Public Use
  Company Number: US-PFIZER INC-2016294082

PATIENT
  Age: 49 Year
  Sex: Female

DRUGS (2)
  1. OSPHENA [Suspect]
     Active Substance: OSPEMIFENE
  2. DIFLUCAN [Suspect]
     Active Substance: FLUCONAZOLE

REACTIONS (2)
  - Acne [Unknown]
  - Rash [Unknown]
